FAERS Safety Report 11372949 (Version 1)
Quarter: 2015Q3

REPORT INFORMATION
  Report Type: Spontaneous
  Country: US (occurrence: US)
  Receive Date: 20150811
  Receipt Date: 20150811
  Transmission Date: 20151125
  Serious: No
  Sender: FDA-Public Use
  Company Number: US-ELI_LILLY_AND_COMPANY-US201202005650

PATIENT
  Sex: Male

DRUGS (1)
  1. CIALIS [Suspect]
     Active Substance: TADALAFIL
     Indication: PREMATURE EJACULATION
     Dosage: 5 MG, QD
     Dates: start: 201201, end: 20120214

REACTIONS (2)
  - Premature ejaculation [Not Recovered/Not Resolved]
  - Off label use [Unknown]
